FAERS Safety Report 7097065-8 (Version None)
Quarter: 2010Q4

REPORT INFORMATION
  Report Type: 
  Country: None (occurrence: None)
  Receive Date: 20101111
  Receipt Date: 20101102
  Transmission Date: 20110411
  Serious: Yes (Other)
  Sender: FDA-Public Use
  Company Number: US-BAYER-201033453NA

PATIENT
  Sex: Female

DRUGS (4)
  1. AVELOX [Suspect]
     Indication: PROPHYLAXIS URINARY TRACT INFECTION
     Route: 048
  2. BACTRIM DS [Concomitant]
  3. LYRICA [Concomitant]
     Dates: start: 20100901
  4. XOLAIR [Concomitant]

REACTIONS (1)
  - URTICARIA [None]
